FAERS Safety Report 21749279 (Version 1)
Quarter: 2022Q4

REPORT INFORMATION
  Report Type: Spontaneous
  Country: US (occurrence: None)
  Receive Date: 20221217
  Receipt Date: 20221217
  Transmission Date: 20230113
  Serious: Yes (Hospitalization)
  Sender: FDA-Public Use
  Company Number: None

PATIENT
  Age: 64 Year
  Sex: Male
  Weight: 89.1 kg

DRUGS (2)
  1. TAXOTERE [Suspect]
     Active Substance: DOCETAXEL
     Dates: end: 20221208
  2. RAMUCIRUMAB [Suspect]
     Active Substance: RAMUCIRUMAB
     Dates: end: 20221202

REACTIONS (5)
  - Sepsis [None]
  - Acute respiratory failure [None]
  - Acute kidney injury [None]
  - COVID-19 [None]
  - Pneumonia bacterial [None]

NARRATIVE: CASE EVENT DATE: 20221213
